FAERS Safety Report 14349616 (Version 1)
Quarter: 2018Q1

REPORT INFORMATION
  Report Type: Report from Study
  Country: PH (occurrence: PH)
  Receive Date: 20180104
  Receipt Date: 20180104
  Transmission Date: 20180509
  Serious: Yes (Hospitalization)
  Sender: FDA-Public Use
  Company Number: PH-ASTELLAS-2010004394

PATIENT
  Age: 65 Year
  Sex: Male
  Weight: 59 kg

DRUGS (9)
  1. METOCLOPRAMIDE. [Concomitant]
     Active Substance: METOCLOPRAMIDE
     Indication: PRODUCT USED FOR UNKNOWN INDICATION
     Dosage: UNK UNK, UNKNOWN FREQ.
     Route: 065
     Dates: start: 20100831
  2. CARBOPLATIN. [Suspect]
     Active Substance: CARBOPLATIN
     Dosage: 310 MG, UNKNOWN FREQ. (LAST DOSE PRIOR TO SAE: 12 OCTOBER 2010. FREQUENCY: ONCE. PERMANENTLY INTERR)
     Dates: start: 20101012
  3. GEMCITABINE [Suspect]
     Active Substance: GEMCITABINE\GEMCITABINE HYDROCHLORIDE
     Dosage: 2 G, UNKNOWN FREQ. ((LAST DOSE PRIOR TO SAE: 17 FEBRUARY 2011.  FREQUENCY: ONCE.TEMPORARILY INTERRU)
     Route: 042
     Dates: start: 20101012, end: 20110217
  4. CARBOPLATIN. [Suspect]
     Active Substance: CARBOPLATIN
     Indication: NON-SMALL CELL LUNG CANCER
     Dosage: 350 MG, UNKNOWN FREQ. (FREQUENCY: ONCE, LAST DOSE PRIOR TO SAE: 31 AUGUST 2010, THERAPY INTERRUPTED)
     Route: 042
     Dates: start: 20100831, end: 20100831
  5. COMBIVENT [Concomitant]
     Active Substance: ALBUTEROL SULFATE\IPRATROPIUM BROMIDE
     Indication: PRODUCT USED FOR UNKNOWN INDICATION
     Dosage: UNK, UNKNOWN FREQ. (TOTAL DAILY DOSE: NEB)
     Route: 065
     Dates: start: 20100831
  6. GEMCITABINE [Suspect]
     Active Substance: GEMCITABINE\GEMCITABINE HYDROCHLORIDE
     Indication: NON-SMALL CELL LUNG CANCER
     Dosage: 1.9 G, UNKNOWN FREQ. (FREQUENCY: ONCE, THERAPY PERMANENTLY INTERRUPTED. LAST DOSE PRIOR TO SAE 17 F)
     Route: 042
     Dates: start: 20100831
  7. DOXOFYLLINE [Concomitant]
     Active Substance: DOXOFYLLINE
     Indication: PRODUCT USED FOR UNKNOWN INDICATION
     Dosage: UNK, UNKNOWN FREQ.
     Route: 065
     Dates: start: 20100831
  8. ERLOTINIB [Suspect]
     Active Substance: ERLOTINIB
     Indication: NON-SMALL CELL LUNG CANCER
     Route: 048
     Dates: start: 20100923
  9. FERROUS SULFATE. [Concomitant]
     Active Substance: FERROUS SULFATE
     Indication: PRODUCT USED FOR UNKNOWN INDICATION
     Dosage: UNK, UNKNOWN FREQ.
     Route: 065
     Dates: start: 201006

REACTIONS (3)
  - Anaemia [Recovered/Resolved]
  - Lung infection [Unknown]
  - Anaemia [Recovered/Resolved]

NARRATIVE: CASE EVENT DATE: 20101007
